FAERS Safety Report 8427186-6 (Version None)
Quarter: 2012Q2

REPORT INFORMATION
  Report Type: 
  Country: None (occurrence: None)
  Receive Date: 20120611
  Receipt Date: 20120607
  Transmission Date: 20120825
  Serious: Yes (Other)
  Sender: FDA-Public Use
  Company Number: JP-PFIZER INC-2012127629

PATIENT
  Age: 62 Year
  Sex: Male

DRUGS (4)
  1. GABAPENTIN [Suspect]
     Indication: PARTIAL SEIZURES
     Dosage: UNK
     Route: 048
     Dates: start: 20120120, end: 20120524
  2. ADALAT CC [Concomitant]
     Dosage: UNK
     Route: 048
  3. ZESTRIL [Concomitant]
     Dosage: UNK
     Route: 048
  4. TEGRETOL [Concomitant]
     Dosage: UNK
     Route: 048

REACTIONS (2)
  - RENAL FAILURE [None]
  - EOSINOPHIL COUNT INCREASED [None]
